FAERS Safety Report 15333442 (Version 3)
Quarter: 2018Q4

REPORT INFORMATION
  Report Type: Other
  Country: US (occurrence: US)
  Receive Date: 20180830
  Receipt Date: 20181108
  Transmission Date: 20190204
  Serious: Yes (Death, Other)
  Sender: FDA-Public Use
  Company Number: US-ACORDA-ACO_153213_2018

PATIENT
  Sex: Female

DRUGS (1)
  1. AMPYRA [Suspect]
     Active Substance: DALFAMPRIDINE
     Indication: MULTIPLE SCLEROSIS
     Dosage: 10 MG, BID
     Route: 065
     Dates: start: 20170214

REACTIONS (1)
  - Pancreatic carcinoma [Fatal]
